FAERS Safety Report 12755216 (Version 2)
Quarter: 2016Q3

REPORT INFORMATION
  Report Type: Spontaneous
  Country: IL (occurrence: IL)
  Receive Date: 20160916
  Receipt Date: 20160930
  Transmission Date: 20161109
  Serious: Yes (Hospitalization, Other)
  Sender: FDA-Public Use
  Company Number: IL-ABBVIE-16K-082-1721862-00

PATIENT
  Age: 59 Year
  Sex: Female

DRUGS (3)
  1. HUMIRA [Suspect]
     Active Substance: ADALIMUMAB
     Indication: COLITIS
     Route: 058
     Dates: start: 20091122, end: 20150322
  2. HUMIRA [Suspect]
     Active Substance: ADALIMUMAB
     Indication: CROHN^S DISEASE
     Route: 058
     Dates: start: 201510, end: 201601
  3. HUMIRA [Suspect]
     Active Substance: ADALIMUMAB
     Indication: ANKYLOSING SPONDYLITIS

REACTIONS (16)
  - Pityriasis lichenoides et varioliformis acuta [Recovered/Resolved]
  - Neutrophil function disorder [Recovered/Resolved]
  - Pigmentation disorder [Recovered/Resolved]
  - Subcutaneous abscess [Recovered/Resolved]
  - Eczema [Recovered/Resolved]
  - Dermatitis psoriasiform [Recovered/Resolved]
  - Skin atrophy [Recovered/Resolved]
  - Extravasation blood [Recovered/Resolved]
  - Pityriasis lichenoides et varioliformis acuta [Recovered/Resolved]
  - Lymphocytic infiltration [Recovered/Resolved]
  - Skin hyperplasia [Recovered/Resolved]
  - Drug eruption [Recovered/Resolved]
  - Parakeratosis [Recovered/Resolved]
  - Red blood cell vacuolisation [Recovered/Resolved]
  - Dermatitis psoriasiform [Recovered/Resolved]
  - Perivascular dermatitis [Recovered/Resolved]

NARRATIVE: CASE EVENT DATE: 201501
